FAERS Safety Report 7920160-5 (Version None)
Quarter: 2011Q4

REPORT INFORMATION
  Report Type: 
  Country: None (occurrence: None)
  Receive Date: 20111117
  Receipt Date: 20100511
  Transmission Date: 20120403
  Serious: No
  Sender: FDA-Public Use
  Company Number: US-BAYER-201022132NA

PATIENT
  Age: 73 Year
  Sex: Female
  Weight: 51.293 kg

DRUGS (3)
  1. NEXAVAR [Suspect]
     Indication: RENAL CELL CARCINOMA
     Dosage: UNK
     Dates: start: 20091102
  2. NEXAVAR [Suspect]
     Indication: METASTASES TO LUNG
     Dosage: UNK
     Dates: end: 20091124
  3. PROCHLORPERAZINE [Concomitant]

REACTIONS (3)
  - DRUG INTOLERANCE [None]
  - PALMAR-PLANTAR ERYTHRODYSAESTHESIA SYNDROME [None]
  - RASH [None]
